FAERS Safety Report 9104076 (Version 2)
Quarter: 2013Q1

REPORT INFORMATION
  Report Type: Report from Study
  Country: CA (occurrence: CA)
  Receive Date: 20130219
  Receipt Date: 20130321
  Transmission Date: 20140127
  Serious: Yes (Other)
  Sender: FDA-Public Use
  Company Number: PHHY2013CA015197

PATIENT
  Age: 55 Year
  Sex: Female

DRUGS (22)
  1. CLOZARIL [Suspect]
     Indication: SCHIZOPHRENIA
     Dosage: 250 MG,
     Route: 048
     Dates: start: 19930125
  2. CLOZARIL [Suspect]
     Dosage: 250 MG,  (AT BED TIME)
     Route: 048
     Dates: start: 20120109
  3. ATORVASTATIN [Concomitant]
     Indication: LIPIDS INCREASED
     Dosage: 40 MG, (1 TABLET AT BEDTIME)
     Route: 048
     Dates: start: 20100622
  4. DULCOLAX [Concomitant]
     Indication: LAXATIVE SUPPORTIVE CARE
     Dosage: 20 MG, (ONCE DAILY)
     Route: 048
  5. NOVO CALCIUM [Concomitant]
     Indication: MINERAL SUPPLEMENTATION
     Dosage: 500 MG, BID
  6. CLOPIDOGREL [Concomitant]
     Indication: PLATELET DISORDER
     Dosage: 75 MG, (DAILY)
  7. DOCUSATE [Concomitant]
     Indication: FAECES HARD
     Dosage: 1 DF, (DAILY)
     Route: 048
     Dates: start: 20120109
  8. ELTROXIN [Concomitant]
     Indication: THYROID DISORDER
     Dosage: 0.05 MG, (1 TABLET DAILY)
     Route: 048
  9. FERROUS GLUCONATE [Concomitant]
     Indication: MINERAL SUPPLEMENTATION
     Dosage: 1 DF, (DAILY)
  10. ISOPTO ATROPINE [Concomitant]
     Indication: GLAUCOMA
     Dosage: 1 DF, (2 DROPS AT BEDTIME)
     Route: 060
  11. NIZRAL [Concomitant]
     Indication: ANTIFUNGAL TREATMENT
     Dosage: UNK(BEDTIME APPLICATION)
  12. LACTULOSE [Concomitant]
     Indication: LAXATIVE SUPPORTIVE CARE
     Dosage: 15 ML, BID
     Route: 048
  13. LAX-A-DAY [Concomitant]
     Indication: FAECES HARD
     Dosage: 17 MG, (EVERY SECOND DAY)
     Dates: start: 20121002
  14. LOPRESSOR [Concomitant]
     Indication: HYPERTENSION
     Dosage: UNK (HALF TABLET) , BID
     Route: 048
  15. MILK OF MAGNESIA [Concomitant]
     Indication: LAXATIVE SUPPORTIVE CARE
     Dosage: 15 ML,
     Route: 048
  16. WEBBER NATURALS VITAMIN B50 COMPLEX [Concomitant]
     Indication: VITAMIN SUPPLEMENTATION
     Dosage: 1 DF, (DAILY)
     Route: 048
  17. ENEMOL [Concomitant]
     Indication: LAXATIVE SUPPORTIVE CARE
     Dosage: UNK
     Route: 054
  18. PICO-SALAX [Concomitant]
     Dosage: UNK
  19. POLYSPORIN [Concomitant]
     Indication: BACTERIAL INFECTION
     Dosage: UNK , BID
  20. RABEPRAZOLE EC [Concomitant]
     Indication: ULCER
     Dosage: 1 DF, BID 1/2 AN HOUR BEFORE DINNER AND BREAKFAST)
     Route: 048
  21. VITAMIN B12 [Concomitant]
     Indication: ANAEMIA
     Dosage: 1 DF, (DAILY)
     Route: 048
  22. VITAMIN D3 [Concomitant]
     Indication: ANAEMIA
     Dosage: 1 DF, (DAILY)
     Route: 048

REACTIONS (1)
  - Drug withdrawal convulsions [Recovered/Resolved]
